FAERS Safety Report 8329519-8 (Version None)
Quarter: 2012Q2

REPORT INFORMATION
  Report Type: 
  Country: None (occurrence: None)
  Receive Date: 20120430
  Receipt Date: 20120416
  Transmission Date: 20120825
  Serious: Yes (Hospitalization)
  Sender: FDA-Public Use
  Company Number: 7126388

PATIENT
  Age: 64 Year
  Sex: Male

DRUGS (13)
  1. INFLUVAC (INFLUENZA VIRUS VACCINE POLYVALET) (INFLUENZA VIRUS SURFACE [Suspect]
     Indication: INFLUENZA IMMUNISATION
     Dosage: 0.0027 DF (1 DF, 1 IN 1 IN 1 Y), INTRAMUSCULAR
     Route: 030
     Dates: start: 20111101
  2. RENITEC (ENALAPRIL) (20 MG, ORAL LYOPHILISATE) (ENALAPRIL) [Suspect]
     Indication: HYPERTENSION
     Dosage: 1 DF (1 DF, 1 IN 1 D), ORAL
     Route: 048
     Dates: start: 20081001
  3. DIAMICRON (GLICLAZIDE) (30 MG, MODIFIED-RELEASE TABLET) (GLICLAZIDE) [Suspect]
     Indication: TYPE 2 DIABETES MELLITUS
     Dosage: 4 DF (4 DF, MORNING), ORAL
     Route: 048
     Dates: start: 20081001
  4. SINROM (ACENOCIYMAROL) (4 MG, TABLET) (ACENOCOUMAROL) [Suspect]
     Indication: ATRIAL FIBRILLATION
     Dosage: 1.25 DF AND 1DF ALTERNATELY, ORAL
     Route: 048
     Dates: start: 20081001
  5. GLUCOPHAGE [Suspect]
     Indication: PRODUCT USED FOR UNKNOWN INDICATION
     Dosage: ORAL
     Route: 048
     Dates: start: 20081001
  6. ALLOPURINOL [Suspect]
     Indication: GOUT
     Dosage: 1 DF (1 DF, 1 IN 1 D), ORAL
     Route: 048
     Dates: start: 20081001, end: 20120323
  7. LERCAN (LERCANIDIOUBE HYDROCHLORIDE) (10 MG, FILM-COATED TALBET) (LERC [Suspect]
     Indication: HYPERTENSION
     Dosage: 1 DF (1 DF, 1 IN 1 D), ORAL
     Route: 048
     Dates: start: 20081001
  8. ALDACTAZIDE [Suspect]
     Indication: HYPERTENSION
     Dosage: 1 DF (1 DF, 1 IN 1 D),ORAL
     Route: 048
     Dates: start: 20081001
  9. OMEPRAZOLE [Suspect]
     Indication: GASTRITIS
     Dosage: 1 DF (1 DF, 1 IN 1D), ORAL
     Route: 048
     Dates: start: 20081001
  10. TRANDATE [Suspect]
     Indication: HYPERTENSION
     Dosage: 3 DF (1 DF, 3 IN 1 D), ORAL
     Route: 048
     Dates: start: 20081001
  11. LEVOTHYROXINE SODIUM [Suspect]
     Indication: PRODUCT USED FOR UNKNOWN INDICATION
     Dosage: 1 DF (1 DF, 1 IN 1D),ORAL
     Route: 048
     Dates: start: 20081001
  12. FUROSEMIDE [Suspect]
     Indication: CARDIAC FAILURE
     Dosage: FROM 1 DF TO SEVERAL DF DEPENDING ON RESPIRATORY CONDITIONS, ORAL
     Route: 048
     Dates: start: 20101001
  13. DIGOXIN [Suspect]
     Indication: PRODUCT USED FOR UNKNOWN INDICATION
     Dosage: ORAL
     Route: 048
     Dates: start: 20081001

REACTIONS (2)
  - VASCULAR PURPURA [None]
  - RENAL IMPAIRMENT [None]
